FAERS Safety Report 17826821 (Version 1)
Quarter: 2020Q2

REPORT INFORMATION
  Report Type: Spontaneous
  Country: IT (occurrence: IT)
  Receive Date: 20200527
  Receipt Date: 20200527
  Transmission Date: 20200714
  Serious: Yes (Death, Congenital Anomaly, Other)
  Sender: FDA-Public Use
  Company Number: IT-TEVA-2020-IT-1239383

PATIENT
  Age: 55 Year
  Sex: Female

DRUGS (5)
  1. BEVACIZUMAB. [Suspect]
     Active Substance: BEVACIZUMAB
     Indication: OVARIAN CANCER
     Dosage: A TOTAL OF 22 CYCLES
     Route: 065
     Dates: start: 201602, end: 201701
  2. LIPOSOMAL DOXORUBICIN [Suspect]
     Active Substance: DOXORUBICIN HYDROCHLORIDE
     Indication: OVARIAN CANCER
     Dosage: STOPPED AFTER 2 CYCLES
     Route: 050
     Dates: start: 201808
  3. OLAPARIB. [Suspect]
     Active Substance: OLAPARIB
     Indication: OVARIAN CANCER
     Route: 065
     Dates: start: 201707, end: 201804
  4. CARBOPLATIN. [Suspect]
     Active Substance: CARBOPLATIN
     Indication: OVARIAN CANCER
     Dosage: AUC 4 (ON DAY 1); SIX CYCLES TOTAL
     Route: 065
     Dates: start: 201602, end: 201606
  5. GEMCITABINE. [Suspect]
     Active Substance: GEMCITABINE
     Indication: OVARIAN CANCER
     Dosage: ON DAYS 1 AND 8; SIX CYCLES TOTAL
     Route: 065
     Dates: start: 201602, end: 201606

REACTIONS (3)
  - BRCA2 gene mutation [Unknown]
  - Infusion related reaction [Unknown]
  - Drug resistance [Unknown]
